FAERS Safety Report 12092150 (Version 3)
Quarter: 2016Q1

REPORT INFORMATION
  Report Type: Report from Study
  Country: US (occurrence: US)
  Receive Date: 20160219
  Receipt Date: 20160309
  Transmission Date: 20160526
  Serious: No
  Sender: FDA-Public Use
  Company Number: US-AMGEN-USASL2016018890

PATIENT
  Age: 88 Year
  Sex: Female

DRUGS (1)
  1. ENBREL [Suspect]
     Active Substance: ETANERCEPT
     Indication: RHEUMATOID ARTHRITIS
     Dosage: 50 MG, QWK
     Route: 065
     Dates: start: 201306

REACTIONS (9)
  - Injection site reaction [Unknown]
  - Drug dose omission [Unknown]
  - Arthritis [Unknown]
  - Mobility decreased [Unknown]
  - Injection site erythema [Unknown]
  - Asthenia [Unknown]
  - Injection site pain [Unknown]
  - Accidental exposure to product [Unknown]
  - Device issue [Unknown]
